FAERS Safety Report 5989645-5 (Version None)
Quarter: 2008Q4

REPORT INFORMATION
  Report Type: 
  Country: None (occurrence: None)
  Receive Date: 20081208
  Receipt Date: 20081120
  Transmission Date: 20090506
  Serious: Yes (Other)
  Sender: FDA-Public Use
  Company Number: 1000002974

PATIENT
  Age: 45 Year
  Sex: Male

DRUGS (13)
  1. CITALOPRAM HYDROBROMIDE [Suspect]
     Dosage: 20 MG (20 MG, 1 IN 1 D), ORAL
     Route: 048
     Dates: start: 20080610
  2. INVEGA [Suspect]
     Dosage: 12 MG (12 MG, 1 IN 1 D),ORAL
     Route: 048
  3. CONCOR [Suspect]
     Dosage: 5 MG (5 MG, 1 IN 1 D) , ORAL
     Route: 048
  4. LEPONEX [Concomitant]
     Dosage: 50 MG (50 MG,1 IN 1 D) ORAL
     Route: 048
     Dates: start: 20080609, end: 20080611
  5. LEPONEX [Suspect]
     Dosage: 12.5 MG (12.5 MG, 1 IN 1 D),ORAL;  25 MG (25 MG,1 IN 1 D),ORAL
     Route: 048
     Dates: start: 20080605, end: 20080605
  6. LEPONEX [Suspect]
     Dosage: 12.5 MG (12.5 MG, 1 IN 1 D),ORAL;  25 MG (25 MG,1 IN 1 D),ORAL
     Route: 048
     Dates: start: 20080606, end: 20080608
  7. DOMINAL [Suspect]
     Dosage: 120 MG (120 MG,1 IN 1 D), ORAL
     Route: 048
  8. TRIAMTEREN COMP [Suspect]
     Dosage: 1 DOSAGE FORMS (1 DOSAGE FORMS, 1 IN 1 D), ORAL
     Route: 048
  9. SOLIAN [Concomitant]
  10. AKINETON RET [Concomitant]
  11. ASPIRIN [Concomitant]
  12. LEVOTHYROXINE SODIUM [Concomitant]
  13. INSULIN [Concomitant]

REACTIONS (8)
  - ANGINA PECTORIS [None]
  - BLOOD CREATININE INCREASED [None]
  - BLOOD UREA INCREASED [None]
  - CARDIAC HYPERTROPHY [None]
  - DIZZINESS [None]
  - FALL [None]
  - GENERAL PHYSICAL HEALTH DETERIORATION [None]
  - HYPOTENSION [None]
